FAERS Safety Report 15010821 (Version 5)
Quarter: 2018Q3

REPORT INFORMATION
  Report Type: Report from Study
  Country: US (occurrence: US)
  Receive Date: 20180614
  Receipt Date: 20180921
  Transmission Date: 20181010
  Serious: Yes (Hospitalization)
  Sender: FDA-Public Use
  Company Number: US-BAYER-2018-109168

PATIENT
  Age: 45 Year
  Sex: Female

DRUGS (4)
  1. NEXAVAR [Suspect]
     Active Substance: SORAFENIB
     Indication: ADRENAL GLAND CANCER
     Dosage: DAILY DOSE 400 MG (IN THE MORNING)
     Route: 048
     Dates: start: 2018, end: 20180822
  2. NEXAVAR [Suspect]
     Active Substance: SORAFENIB
     Indication: ADRENAL GLAND CANCER
     Dosage: 400 MG, QD
     Route: 048
     Dates: start: 2018, end: 20180628
  3. NEXAVAR [Suspect]
     Active Substance: SORAFENIB
     Indication: ADRENAL GLAND CANCER
     Dosage: UNK
     Dates: start: 201805, end: 2018
  4. NEXAVAR [Suspect]
     Active Substance: SORAFENIB
     Indication: ADRENAL GLAND CANCER
     Dosage: 400 MG, BID
     Route: 048
     Dates: start: 20180524, end: 2018

REACTIONS (21)
  - Erythema [Not Recovered/Not Resolved]
  - Product use in unapproved indication [None]
  - Off label use [None]
  - Palmar-plantar erythrodysaesthesia syndrome [Recovering/Resolving]
  - Pyrexia [Not Recovered/Not Resolved]
  - Alopecia [Recovering/Resolving]
  - Somnolence [Not Recovered/Not Resolved]
  - Decreased appetite [None]
  - Palmar-plantar erythrodysaesthesia syndrome [Not Recovered/Not Resolved]
  - Rash erythematous [Not Recovered/Not Resolved]
  - Diarrhoea [Not Recovered/Not Resolved]
  - Vomiting [Not Recovered/Not Resolved]
  - Weight decreased [Not Recovered/Not Resolved]
  - Hot flush [None]
  - Skin discolouration [Recovered/Resolved]
  - Pyrexia [Recovered/Resolved]
  - Pruritus [Recovered/Resolved]
  - Vomiting [Not Recovered/Not Resolved]
  - Rash [Not Recovered/Not Resolved]
  - Drug ineffective [None]
  - Weight decreased [Recovered/Resolved]

NARRATIVE: CASE EVENT DATE: 2018
